FAERS Safety Report 12863713 (Version 1)
Quarter: 2016Q4

REPORT INFORMATION
  Report Type: Spontaneous
  Country: IT (occurrence: IT)
  Receive Date: 20161019
  Receipt Date: 20161019
  Transmission Date: 20170207
  Serious: Yes (Other)
  Sender: FDA-Public Use
  Company Number: IT-ABBVIE-16P-083-1758023-00

PATIENT
  Age: 25 Year
  Sex: Female

DRUGS (2)
  1. DEPAKIN [Suspect]
     Active Substance: VALPROATE SODIUM
     Indication: EPILEPSY
     Route: 065
  2. DEPAKIN [Suspect]
     Active Substance: VALPROATE SODIUM
     Indication: SYNCOPE
     Route: 065
     Dates: start: 2015

REACTIONS (2)
  - Stillbirth [Unknown]
  - Exposure during pregnancy [Unknown]
